FAERS Safety Report 18223047 (Version 1)
Quarter: 2020Q3

REPORT INFORMATION
  Report Type: Spontaneous
  Country: JP (occurrence: JP)
  Receive Date: 20200902
  Receipt Date: 20200902
  Transmission Date: 20201103
  Serious: Yes (Hospitalization, Other)
  Sender: FDA-Public Use
  Company Number: JP-COVIS PHARMA B.V.-2020COV00411

PATIENT
  Age: 76 Year
  Sex: Male

DRUGS (2)
  1. DIGOXIN. [Suspect]
     Active Substance: DIGOXIN
     Dosage: 0.125 MG, 1X/DAY
     Route: 065
  2. DIGOXIN. [Suspect]
     Active Substance: DIGOXIN
     Dosage: 0.25 MG
     Route: 065

REACTIONS (4)
  - Road traffic accident [Unknown]
  - Xanthopsia [Recovered/Resolved]
  - Cardiac failure [Unknown]
  - Toxicity to various agents [Recovered/Resolved]
